FAERS Safety Report 7248503-9 (Version None)
Quarter: 2011Q1

REPORT INFORMATION
  Report Type: 
  Country: None (occurrence: None)
  Receive Date: 20110127
  Receipt Date: 20110113
  Transmission Date: 20110831
  Serious: Yes (Hospitalization, Other)
  Sender: FDA-Public Use
  Company Number: DE-GENENTECH-312278

PATIENT
  Sex: Male
  Weight: 98 kg

DRUGS (5)
  1. CYCLOPHOSPHAMIDE [Concomitant]
     Dosage: 750 MG, UNK
     Dates: start: 20101129, end: 20101222
  2. MABTHERA [Suspect]
     Indication: DIFFUSE LARGE B-CELL LYMPHOMA
     Dosage: UNK
     Route: 065
     Dates: start: 20061201, end: 20101001
  3. ANTHRACYCLINE NOS [Concomitant]
     Indication: DIFFUSE LARGE B-CELL LYMPHOMA
     Dosage: UNK
     Dates: start: 20061201, end: 20101001
  4. MABTHERA [Suspect]
     Dosage: 375 MG/M2, UNK
     Route: 065
     Dates: start: 20101129, end: 20101222
  5. CYCLOPHOSPHAMIDE [Concomitant]
     Indication: DIFFUSE LARGE B-CELL LYMPHOMA
     Dosage: UNK
     Dates: start: 20061201, end: 20101001

REACTIONS (2)
  - WARM TYPE HAEMOLYTIC ANAEMIA [None]
  - PLATELET COUNT DECREASED [None]
